FAERS Safety Report 12386095 (Version 2)
Quarter: 2016Q3

REPORT INFORMATION
  Report Type: Report from Study
  Country: CN (occurrence: CN)
  Receive Date: 20160519
  Receipt Date: 20160927
  Transmission Date: 20161109
  Serious: Yes (Other)
  Sender: FDA-Public Use
  Company Number: CN-PFIZER INC-2016263074

PATIENT
  Age: 44 Year
  Sex: Female

DRUGS (2)
  1. LOBAPLATIN [Suspect]
     Active Substance: LOBAPLATIN
     Indication: OVARIAN CANCER RECURRENT
     Dosage: 50 MG/M2, CYCLIC
     Route: 033
  2. PACLITAXEL. [Suspect]
     Active Substance: PACLITAXEL
     Indication: OVARIAN CANCER RECURRENT
     Dosage: 100 MG/M2, CYCLIC
     Route: 033

REACTIONS (1)
  - Pseudomembranous colitis [Unknown]
